FAERS Safety Report 6672103-2 (Version None)
Quarter: 2010Q2

REPORT INFORMATION
  Report Type: 
  Country: None (occurrence: None)
  Receive Date: 20100407
  Receipt Date: 20100407
  Transmission Date: 20101027
  Serious: Yes (Hospitalization)
  Sender: FDA-Public Use
  Company Number: None

PATIENT
  Sex: Male
  Weight: 71.6683 kg

DRUGS (14)
  1. PREVACID [Suspect]
  2. AMLODIPINE [Concomitant]
  3. TEMAZEPAM [Concomitant]
  4. PROPFENONE [Concomitant]
  5. CITALOPRAM HYDROBROMIDE [Concomitant]
  6. FORMOTEROL [Concomitant]
  7. FINASTERIDE [Concomitant]
  8. METOPROLOL TARTRATE [Concomitant]
  9. POTASSIUM [Concomitant]
  10. ALBUTEROL [Concomitant]
  11. ASMANEX TWISTHALER [Concomitant]
  12. LISINOPRIL [Concomitant]
  13. LOVASTATIN [Concomitant]
  14. TERAZOSIN HCL [Concomitant]

REACTIONS (4)
  - CONSTIPATION [None]
  - COUGH [None]
  - DYSPHAGIA [None]
  - PARENTERAL NUTRITION [None]
